FAERS Safety Report 5103123-7 (Version None)
Quarter: 2006Q3

REPORT INFORMATION
  Report Type: 
  Country: None (occurrence: None)
  Receive Date: 20060908
  Receipt Date: 20060828
  Transmission Date: 20061208
  Serious: Yes (Other)
  Sender: FDA-Public Use
  Company Number: 2006105280

PATIENT
  Age: 31 Year
  Sex: Female

DRUGS (4)
  1. XANAX [Suspect]
     Indication: ANXIETY
     Dosage: 2 IN 1 D, ORAL
     Route: 048
  2. XANAX [Suspect]
     Indication: DEPRESSION
     Dosage: 2 IN 1 D, ORAL
     Route: 048
  3. LORAZEPAM [Suspect]
     Indication: ANXIETY
     Dosage: 5 MG (2.5 MG, 2 IN 1 D), ORAL
     Route: 048
  4. LORAZEPAM [Suspect]
     Indication: DEPRESSION
     Dosage: 5 MG (2.5 MG, 2 IN 1 D), ORAL
     Route: 048

REACTIONS (3)
  - ABORTION SPONTANEOUS [None]
  - DRUG EXPOSURE DURING PREGNANCY [None]
  - PREGNANCY [None]
